FAERS Safety Report 22660558 (Version 1)
Quarter: 2023Q2

REPORT INFORMATION
  Report Type: Spontaneous
  Country: NO (occurrence: NO)
  Receive Date: 20230630
  Receipt Date: 20230630
  Transmission Date: 20230722
  Serious: Yes (Other)
  Sender: FDA-Public Use
  Company Number: None

PATIENT
  Age: 41 Year
  Sex: Female
  Weight: 66 kg

DRUGS (12)
  1. INFLIXIMAB [Suspect]
     Active Substance: INFLIXIMAB
     Indication: Crohn^s disease
     Dosage: L04AB02 - INFLIKSIMAB - ONGOING TREATMENT;
     Route: 065
     Dates: start: 2018
  2. INFLIXIMAB [Suspect]
     Active Substance: INFLIXIMAB
     Indication: Ankylosing spondylitis
  3. COMIRNATY [Suspect]
     Active Substance: TOZINAMERAN
     Indication: Immunisation
     Dosage: DOSE NO. IN SERIES: 2 VACCINATION SITE: LEFTARM, DISPERSION; J07BX03 - COVID-19 VAKSINER; 5^CAPPED M
     Route: 065
     Dates: start: 20210728
  4. COMIRNATY [Suspect]
     Active Substance: TOZINAMERAN
     Dosage: DOSE NO. IN SERIES: 1; DISPERSION;
     Route: 065
     Dates: start: 2021
  5. LACTIC ACID BACTERIA COMPLEX [Concomitant]
     Indication: Product used for unknown indication
     Dosage: UNKNOWN
     Route: 065
  6. VITAMIN B COMPLEX [Concomitant]
     Active Substance: CYANOCOBALAMIN\DEXPANTHENOL\NIACINAMIDE\PYRIDOXINE HYDROCHLORIDE\RIBOFLAVIN 5^-PHOSPHATE SODIUM\THIA
     Indication: Product used for unknown indication
     Dosage: UNKNOWN
     Route: 065
  7. MAGNESIUM [Concomitant]
     Active Substance: MAGNESIUM
     Indication: Product used for unknown indication
     Dosage: UNKNOWN
     Route: 065
  8. MELATONIN [Concomitant]
     Active Substance: MELATONIN
     Indication: Insomnia
     Dosage: CIRCADIN DEPOT TAB 2 MG; N05CH01 - MELATONIN - ONGOING TREATMENT;
     Route: 065
     Dates: start: 2019
  9. LYRICA [Concomitant]
     Active Substance: PREGABALIN
     Indication: Occipital neuralgia
     Dosage: KAPS; N03AX16 - PREGABALIN - ONGOING TREATMENT;
     Dates: start: 201906
  10. PANTOPRAZOLE SODIUM [Concomitant]
     Active Substance: PANTOPRAZOLE SODIUM
     Indication: Gastric ulcer
     Dosage: A02BC02 - PANTOPRAZOL - ONGOING TREATMENT;
     Route: 065
     Dates: start: 2018
  11. METOPROLOL SUCCINATE [Concomitant]
     Active Substance: METOPROLOL SUCCINATE
     Indication: Tachycardia
     Dosage: C07AB02 - METOPROLOL - ONGOING TREATMENT;
     Dates: start: 2014
  12. ACETAMINOPHEN [Concomitant]
     Active Substance: ACETAMINOPHEN
     Indication: Ankylosing spondylitis
     Dosage: N02BE01 - PARACETAMOL - ONGOING TREATMENT;
     Route: 065
     Dates: start: 2018

REACTIONS (17)
  - Ankylosing spondylitis [Not Recovered/Not Resolved]
  - Tongue paralysis [Recovered/Resolved]
  - Dysmenorrhoea [Not Recovered/Not Resolved]
  - Concomitant disease aggravated [Unknown]
  - Influenza like illness [Recovering/Resolving]
  - Occipital neuralgia [Unknown]
  - Myalgia [Not Recovered/Not Resolved]
  - Heart rate increased [Unknown]
  - Pharyngeal hypoaesthesia [Unknown]
  - Feeling hot [Unknown]
  - Paraesthesia [Recovered/Resolved]
  - Dizziness [Recovering/Resolving]
  - Hypoaesthesia oral [Unknown]
  - Nausea [Recovered/Resolved]
  - Therapeutic product effect decreased [Not Recovered/Not Resolved]
  - Drug interaction [Not Recovered/Not Resolved]
  - Product use issue [Unknown]

NARRATIVE: CASE EVENT DATE: 20210101
